FAERS Safety Report 4299904-2 (Version None)
Quarter: 2004Q1

REPORT INFORMATION
  Report Type: 
  Country: None (occurrence: None)
  Receive Date: 20040219
  Receipt Date: 20040219
  Transmission Date: 20041129
  Serious: Yes (Hospitalization)
  Sender: FDA-Public Use
  Company Number: None

PATIENT
  Age: 61 Year
  Sex: Male

DRUGS (11)
  1. DICLOFENAC 75 MG EC [Suspect]
     Indication: PAIN
     Dosage: 1 PO BID
     Route: 048
  2. .. [Concomitant]
  3. GABAPENTIN [Concomitant]
  4. HYDROCHLOROTHIAZIDE [Concomitant]
  5. KCL TAB [Concomitant]
  6. QUININE [Concomitant]
  7. RABEPRAZOLE SODIUM [Concomitant]
  8. VALSARTAN [Concomitant]
  9. TRAMADOL HCL [Concomitant]
  10. TRAZODONE HCL [Concomitant]
  11. SILDENAFIL [Concomitant]

REACTIONS (8)
  - ARTHRITIS [None]
  - ASTHENIA [None]
  - DIZZINESS [None]
  - GASTRIC ULCER [None]
  - HAEMATOCRIT DECREASED [None]
  - HAEMOGLOBIN DECREASED [None]
  - HEADACHE [None]
  - MELAENA [None]
